FAERS Safety Report 13697856 (Version 1)
Quarter: 2017Q2

REPORT INFORMATION
  Report Type: Spontaneous
  Country: US (occurrence: US)
  Receive Date: 20170628
  Receipt Date: 20170628
  Transmission Date: 20170830
  Serious: No
  Sender: FDA-Public Use
  Company Number: US-BAYER-2017-124309

PATIENT
  Sex: Female

DRUGS (1)
  1. YAZ [Suspect]
     Active Substance: DROSPIRENONE\ETHINYL ESTRADIOL
     Indication: ABDOMINAL PAIN
     Dosage: 1 DF, QD
     Route: 048

REACTIONS (1)
  - Adverse event [None]

NARRATIVE: CASE EVENT DATE: 2016
